FAERS Safety Report 14397285 (Version 8)
Quarter: 2018Q4

REPORT INFORMATION
  Report Type: Report from Study
  Country: None (occurrence: DE)
  Receive Date: 20180116
  Receipt Date: 20181121
  Transmission Date: 20190204
  Serious: Yes (Death, Life-Threatening, Hospitalization, Other)
  Sender: FDA-Public Use
  Company Number: DE-ABBVIE-18P-062-2217099-00

PATIENT
  Age: 51 Year
  Sex: Male
  Weight: 86 kg

DRUGS (14)
  1. VENETOCLAX. [Suspect]
     Active Substance: VENETOCLAX
     Route: 048
     Dates: start: 20180108, end: 20180111
  2. VENETOCLAX. [Suspect]
     Active Substance: VENETOCLAX
     Route: 048
     Dates: start: 20180115, end: 20180116
  3. OBINUTUZUMAB. [Concomitant]
     Active Substance: OBINUTUZUMAB
     Indication: PRODUCT USED FOR UNKNOWN INDICATION
     Dosage: DOSE ESCALATION
     Dates: start: 201712, end: 201801
  4. VENETOCLAX. [Suspect]
     Active Substance: VENETOCLAX
     Route: 048
     Dates: start: 201801, end: 2018
  5. VENETOCLAX. [Suspect]
     Active Substance: VENETOCLAX
     Indication: PRODUCT USED FOR UNKNOWN INDICATION
     Route: 048
     Dates: start: 20171220, end: 20180102
  6. VENETOCLAX. [Suspect]
     Active Substance: VENETOCLAX
     Route: 048
     Dates: start: 201805
  7. IBRUTINIB [Concomitant]
     Active Substance: IBRUTINIB
     Indication: PRODUCT USED FOR UNKNOWN INDICATION
     Dates: start: 201710, end: 2017
  8. IBRUTINIB [Concomitant]
     Active Substance: IBRUTINIB
     Dates: start: 2017, end: 201711
  9. TACROLIMUS. [Concomitant]
     Active Substance: TACROLIMUS
     Dosage: REDUCED
     Dates: start: 201805
  10. VENETOCLAX. [Suspect]
     Active Substance: VENETOCLAX
     Route: 048
     Dates: start: 20180112, end: 20180114
  11. FILGRASTIM [Concomitant]
     Active Substance: FILGRASTIM
     Indication: PRODUCT USED FOR UNKNOWN INDICATION
     Dosage: SINCE CYCLE 4
  12. PENTACARINAT [Concomitant]
     Active Substance: PENTAMIDINE ISETHIONATE
     Indication: PRODUCT USED FOR UNKNOWN INDICATION
  13. TACROLIMUS. [Concomitant]
     Active Substance: TACROLIMUS
     Indication: PRODUCT USED FOR UNKNOWN INDICATION
     Dates: end: 201805
  14. VENETOCLAX. [Suspect]
     Active Substance: VENETOCLAX
     Route: 048
     Dates: start: 20180103, end: 20180107

REACTIONS (43)
  - Paraneoplastic syndrome [Unknown]
  - Arrhythmia [Unknown]
  - Off label use [Not Recovered/Not Resolved]
  - Spinal pain [Unknown]
  - Chronic lymphocytic leukaemia recurrent [Unknown]
  - Pancytopenia [Unknown]
  - Pneumonia fungal [Unknown]
  - Decreased appetite [Unknown]
  - Hypercalcaemia [Recovered/Resolved]
  - Acute kidney injury [Unknown]
  - Febrile bone marrow aplasia [Unknown]
  - Thrombocytopenia [Unknown]
  - Cellulitis [Unknown]
  - Transplant failure [Unknown]
  - Bone marrow necrosis [Unknown]
  - Tachycardia [Unknown]
  - Drug ineffective [Unknown]
  - Conjunctival haemorrhage [Unknown]
  - Skin reaction [Unknown]
  - Atrial fibrillation [Unknown]
  - Blood parathyroid hormone decreased [Unknown]
  - Nausea [Unknown]
  - White blood cell disorder [Unknown]
  - Seizure [Unknown]
  - Clostridium test positive [Unknown]
  - Thrombotic microangiopathy [Unknown]
  - Cytomegalovirus infection [Unknown]
  - B-lymphocyte abnormalities [Unknown]
  - Pain [Unknown]
  - Oral herpes [Unknown]
  - Platelet disorder [Unknown]
  - Hepatic failure [Unknown]
  - Pancytopenia [Unknown]
  - Subarachnoid haemorrhage [Unknown]
  - Anal abscess [Unknown]
  - Death [Fatal]
  - Cerebral microembolism [Unknown]
  - Vena cava thrombosis [Unknown]
  - Retinal haemorrhage [Unknown]
  - Diarrhoea [Unknown]
  - Coagulopathy [Unknown]
  - Somnolence [Unknown]
  - Anaemia [Unknown]

NARRATIVE: CASE EVENT DATE: 20171220
